FAERS Safety Report 4854415-8 (Version None)
Quarter: 2005Q4

REPORT INFORMATION
  Report Type: 
  Country: None (occurrence: None)
  Receive Date: 20051215
  Receipt Date: 20050429
  Transmission Date: 20060501
  Serious: Yes (Hospitalization, Other)
  Sender: FDA-Public Use
  Company Number: PHHO2005FR07186

PATIENT
  Age: 80 Year
  Sex: Female

DRUGS (3)
  1. LETROZOLE [Suspect]
     Indication: BREAST CANCER METASTATIC
     Dosage: 2.5 MG, QD
     Route: 048
     Dates: start: 20041213
  2. LETROZOLE [Suspect]
     Dosage: NO TREATMENT
  3. LETROZOLE [Suspect]
     Dosage: 2.5 MG, QD
     Route: 048

REACTIONS (5)
  - CARDIAC FAILURE [None]
  - DYSPNOEA [None]
  - FALL [None]
  - FRACTURE [None]
  - PULMONARY HYPERTENSION [None]
